FAERS Safety Report 8486579-1 (Version None)
Quarter: 2012Q3

REPORT INFORMATION
  Report Type: 
  Country: None (occurrence: None)
  Receive Date: 20120703
  Receipt Date: 20120628
  Transmission Date: 20120928
  Serious: Yes (Hospitalization, Other)
  Sender: FDA-Public Use
  Company Number: US-ELI_LILLY_AND_COMPANY-US201206009377

PATIENT
  Sex: Male

DRUGS (10)
  1. METFORMIN HCL [Concomitant]
     Dosage: UNK
  2. LANTUS [Concomitant]
     Indication: DIABETES MELLITUS
     Dosage: UNK
  3. BYETTA [Suspect]
     Indication: TYPE 2 DIABETES MELLITUS
     Dosage: 10 UG, BID
     Dates: start: 20080101
  4. METOPROLOL SUCCINATE [Concomitant]
     Indication: CARDIAC DISORDER
     Dosage: UNK
  5. NOVOLOG [Concomitant]
     Indication: DIABETES MELLITUS
     Dosage: UNK
  6. WATER PILLS [Concomitant]
     Indication: CARDIAC DISORDER
     Dosage: UNK
  7. BYETTA [Suspect]
     Dosage: 10 UG, BID
  8. LOVASTATIN [Concomitant]
     Indication: CARDIAC DISORDER
     Dosage: UNK
  9. ASPIRIN [Concomitant]
     Indication: CARDIAC DISORDER
     Dosage: UNK
  10. METFORMIN HCL [Concomitant]
     Indication: DIABETES MELLITUS
     Dosage: UNK

REACTIONS (6)
  - FAECAL INCONTINENCE [None]
  - FLATULENCE [None]
  - OFF LABEL USE [None]
  - PALPITATIONS [None]
  - DIARRHOEA [None]
  - BLOOD GLUCOSE INCREASED [None]
